FAERS Safety Report 21415856 (Version 3)
Quarter: 2023Q2

REPORT INFORMATION
  Report Type: Report from Study
  Country: US (occurrence: US)
  Receive Date: 20221006
  Receipt Date: 20230501
  Transmission Date: 20230721
  Serious: Yes (Other)
  Sender: FDA-Public Use
  Company Number: US-ABBVIE-4141008

PATIENT
  Sex: Female

DRUGS (3)
  1. IMBRUVICA [Suspect]
     Active Substance: IBRUTINIB
     Indication: Chronic lymphocytic leukaemia
     Route: 048
  2. IMBRUVICA [Suspect]
     Active Substance: IBRUTINIB
     Indication: Chronic lymphocytic leukaemia
     Route: 048
     Dates: start: 2014
  3. MAGNESIUM [Suspect]
     Active Substance: MAGNESIUM
     Indication: Blood magnesium decreased
     Route: 065

REACTIONS (10)
  - Knee operation [Recovered/Resolved]
  - Blood magnesium decreased [Unknown]
  - Ageusia [Recovered/Resolved]
  - Shoulder operation [Recovered/Resolved]
  - Gastric disorder [Recovered/Resolved]
  - Diarrhoea [Recovered/Resolved]
  - Sinusitis [Unknown]
  - Ageusia [Not Recovered/Not Resolved]
  - Anosmia [Recovered/Resolved]
  - Anosmia [Not Recovered/Not Resolved]

NARRATIVE: CASE EVENT DATE: 20140101
